FAERS Safety Report 15658960 (Version 1)
Quarter: 2018Q4

REPORT INFORMATION
  Report Type: Report from Study
  Country: None (occurrence: DE)
  Receive Date: 20181126
  Receipt Date: 20181126
  Transmission Date: 20190205
  Serious: Yes (Hospitalization, Other)
  Sender: FDA-Public Use
  Company Number: DE-ABBVIE-18K-062-2564868-00

PATIENT
  Age: 18 Year
  Sex: Female
  Weight: 39 kg

DRUGS (2)
  1. HUMIRA [Suspect]
     Active Substance: ADALIMUMAB
     Indication: CROHN^S DISEASE
     Route: 058
     Dates: start: 20160407
  2. HUMIRA [Suspect]
     Active Substance: ADALIMUMAB
     Indication: CROHN^S DISEASE
     Route: 058
     Dates: end: 201711

REACTIONS (11)
  - Bone disorder [Unknown]
  - Varicella [Unknown]
  - Pericardial effusion [Unknown]
  - Meningitis [Unknown]
  - Hepatic failure [Unknown]
  - Pleural effusion [Unknown]
  - Gastroenterostomy [Unknown]
  - Abdominal abscess [Recovered/Resolved]
  - Epilepsy [Unknown]
  - Abdominal wall wound [Unknown]
  - Abscess intestinal [Unknown]

NARRATIVE: CASE EVENT DATE: 201711
